FAERS Safety Report 5627074-4 (Version None)
Quarter: 2008Q1

REPORT INFORMATION
  Report Type: 
  Country: None (occurrence: None)
  Receive Date: 20080115
  Receipt Date: 20071001
  Transmission Date: 20080703
  Serious: Yes (Hospitalization)
  Sender: FDA-Public Use
  Company Number: 2007VX002509

PATIENT
  Age: 81 Year
  Sex: Female
  Weight: 63.05 kg

DRUGS (13)
  1. ZELAPAR [Suspect]
     Indication: PARKINSON'S DISEASE
     Dosage: 1.25 MG;QD;PO
     Route: 048
     Dates: start: 20070913, end: 20070921
  2. PRAMIPEXOLE DIHYDROCHLORIDE [Suspect]
     Indication: PARKINSON'S DISEASE
     Dosage: 0.25 MG;TID;PO ; 0.25 MG;TID;PO ;0.125 MG;TID;PO
     Route: 048
     Dates: start: 20000101, end: 20070912
  3. PRAMIPEXOLE DIHYDROCHLORIDE [Suspect]
     Indication: PARKINSON'S DISEASE
     Dosage: 0.25 MG;TID;PO ; 0.25 MG;TID;PO ;0.125 MG;TID;PO
     Route: 048
     Dates: start: 20070922, end: 20071009
  4. PRAMIPEXOLE DIHYDROCHLORIDE [Suspect]
     Indication: PARKINSON'S DISEASE
     Dosage: 0.25 MG;TID;PO ; 0.25 MG;TID;PO ;0.125 MG;TID;PO
     Route: 048
     Dates: start: 20071010
  5. STAVELO [Concomitant]
  6. VERAPAMIL - SLOW RELEASE [Concomitant]
  7. ATORVASTATIN CALCIUM [Concomitant]
  8. CYANOCOBALAMIN [Concomitant]
  9. PEPCID AC [Concomitant]
  10. LYRICA [Concomitant]
  11. CALCIUM [Concomitant]
  12. VITAMIN D [Concomitant]
  13. TYLENOL [Concomitant]

REACTIONS (8)
  - CONDITION AGGRAVATED [None]
  - DEHYDRATION [None]
  - DIZZINESS [None]
  - FATIGUE [None]
  - INSOMNIA [None]
  - ORTHOSTATIC HYPOTENSION [None]
  - TREMOR [None]
  - URINARY TRACT INFECTION [None]
